FAERS Safety Report 25992456 (Version 1)
Quarter: 2025Q4

REPORT INFORMATION
  Report Type: Spontaneous
  Country: US (occurrence: US)
  Receive Date: 20251103
  Receipt Date: 20251103
  Transmission Date: 20260118
  Serious: No
  Sender: GALPHARM INTERNATIONAL
  Company Number: US-PERRIGO-24US010993

PATIENT
  Sex: Female

DRUGS (2)
  1. UNISOM SLEEPTABS [Suspect]
     Active Substance: DOXYLAMINE SUCCINATE
     Indication: Insomnia
     Dosage: 25 MG, UNKNOWN
     Route: 048
     Dates: start: 2020
  2. UNISOM SLEEPTABS [Suspect]
     Active Substance: DOXYLAMINE SUCCINATE
     Dosage: 12.5 MG, UNKNOWN
     Route: 048
     Dates: start: 2020

REACTIONS (2)
  - Blood pressure increased [Unknown]
  - Underdose [Unknown]

NARRATIVE: CASE EVENT DATE: 20240901
